FAERS Safety Report 24373369 (Version 1)
Quarter: 2024Q3

REPORT INFORMATION
  Report Type: Spontaneous
  Country: JP (occurrence: JP)
  Receive Date: 20240927
  Receipt Date: 20240927
  Transmission Date: 20241017
  Serious: Yes (Other)
  Sender: BIOCON
  Company Number: JP-BIOCON BIOLOGICS LIMITED-BBL2024007150

PATIENT

DRUGS (1)
  1. ADALIMUMAB [Suspect]
     Active Substance: ADALIMUMAB
     Indication: Hidradenitis
     Dosage: UNK (SUBCUTANEOUS INJECTION)
     Route: 065

REACTIONS (2)
  - Diabetes mellitus [Unknown]
  - Off label use [Unknown]
